FAERS Safety Report 24789273 (Version 1)
Quarter: 2024Q4

REPORT INFORMATION
  Report Type: Report from Study
  Country: US (occurrence: US)
  Receive Date: 20241230
  Receipt Date: 20241230
  Transmission Date: 20250114
  Serious: Yes (Other)
  Sender: MYLAN
  Company Number: US-MYLANLABS-2024M1115290

PATIENT
  Age: 62 Year
  Sex: Female

DRUGS (11)
  1. LIPITOR [Suspect]
     Active Substance: ATORVASTATIN CALCIUM
     Indication: Product used for unknown indication
     Dosage: UNK
     Route: 065
  2. OFEV [Suspect]
     Active Substance: NINTEDANIB
     Indication: Idiopathic pulmonary fibrosis
     Dosage: 200 MILLIGRAM, QD (ONCE DAILY)
     Route: 048
     Dates: start: 20231201
  3. OFEV [Suspect]
     Active Substance: NINTEDANIB
     Dosage: 200 MILLIGRAM, QD (ONCE DAILY)
     Route: 048
  4. OFEV [Suspect]
     Active Substance: NINTEDANIB
     Dosage: 200 MILLIGRAM, QD (ONCE DAILY)
     Route: 048
  5. OFEV [Suspect]
     Active Substance: NINTEDANIB
     Dosage: 200 MILLIGRAM, QD (ONCE DAILY)
     Route: 048
  6. OFEV [Suspect]
     Active Substance: NINTEDANIB
     Dosage: 200 MILLIGRAM, QD (ONCE DAILY)
     Route: 048
  7. OFEV [Suspect]
     Active Substance: NINTEDANIB
     Dosage: 200 MILLIGRAM, QD (ONCE DAILY)
     Route: 048
  8. OFEV [Suspect]
     Active Substance: NINTEDANIB
     Dosage: 200 MILLIGRAM, QD (ONCE DAILY)
     Route: 048
  9. OFEV [Suspect]
     Active Substance: NINTEDANIB
     Dosage: 200 MILLIGRAM, QD (ONCE DAILY)
     Route: 048
  10. AMLODIPINE [Concomitant]
     Active Substance: AMLODIPINE BESYLATE
     Indication: Product used for unknown indication
     Dosage: UNK
     Route: 065
  11. AUGMENTIN [Concomitant]
     Active Substance: AMOXICILLIN\CLAVULANATE POTASSIUM
     Indication: Product used for unknown indication
     Dosage: UNK
     Route: 065

REACTIONS (47)
  - CREST syndrome [Unknown]
  - Internal haemorrhage [Unknown]
  - Peritonsillar abscess [Unknown]
  - Chills [Unknown]
  - Arthropod bite [Unknown]
  - Infected bite [Unknown]
  - Blood cholesterol increased [Recovered/Resolved]
  - Sinusitis [Unknown]
  - Corneal abrasion [Unknown]
  - Pain [Recovered/Resolved]
  - Gastrointestinal disorder [Unknown]
  - Dyspnoea [Unknown]
  - Dysphonia [Unknown]
  - Respiratory tract infection viral [Unknown]
  - Cough [Recovering/Resolving]
  - Ear discomfort [Unknown]
  - Blood pressure decreased [Unknown]
  - Taste disorder [Unknown]
  - Decreased appetite [Unknown]
  - Abdominal pain upper [Recovered/Resolved]
  - Weight decreased [Recovered/Resolved]
  - Constipation [Unknown]
  - Headache [Recovering/Resolving]
  - Gastrooesophageal reflux disease [Not Recovered/Not Resolved]
  - Scar [Recovering/Resolving]
  - Hot flush [Unknown]
  - Fungal infection [Unknown]
  - Influenza [Unknown]
  - Tonsillitis [Unknown]
  - Tonsillar hypertrophy [Unknown]
  - Retching [Unknown]
  - Oropharyngeal pain [Unknown]
  - Upper respiratory tract infection [Unknown]
  - Laryngitis [Unknown]
  - Pharyngitis [Unknown]
  - Oesophageal spasm [Recovered/Resolved]
  - COVID-19 [Recovered/Resolved]
  - Muscular weakness [Recovered/Resolved]
  - Nausea [Recovered/Resolved]
  - Myalgia [Recovered/Resolved]
  - Oedema peripheral [Recovering/Resolving]
  - Fatigue [Recovered/Resolved]
  - Pyrexia [Unknown]
  - Malaise [Unknown]
  - Flatulence [Unknown]
  - Arthralgia [Unknown]
  - Diarrhoea [Not Recovered/Not Resolved]

NARRATIVE: CASE EVENT DATE: 20231226
